FAERS Safety Report 5626391-1 (Version None)
Quarter: 2008Q1

REPORT INFORMATION
  Report Type: 
  Country: None (occurrence: None)
  Receive Date: 20080211
  Receipt Date: 20080124
  Transmission Date: 20080703
  Serious: Yes (Life-Threatening, Hospitalization)
  Sender: FDA-Public Use
  Company Number: DSA_31399_2008

PATIENT
  Age: 18 Year
  Sex: Female

DRUGS (1)
  1. DILTIAZEM [Suspect]
     Indication: DRUG USE FOR UNKNOWN INDICATION
     Dosage: (DF)

REACTIONS (9)
  - ALCOHOL USE [None]
  - BRADYCARDIA [None]
  - CARDIOVASCULAR DISORDER [None]
  - DEPRESSED LEVEL OF CONSCIOUSNESS [None]
  - DRUG TOXICITY [None]
  - HYPOTENSION [None]
  - HYPOTHERMIA [None]
  - METABOLIC ACIDOSIS [None]
  - SYNCOPE [None]
